FAERS Safety Report 23558902 (Version 2)
Quarter: 2024Q1

REPORT INFORMATION
  Report Type: Spontaneous
  Country: JP (occurrence: JP)
  Receive Date: 20240223
  Receipt Date: 20240318
  Transmission Date: 20240410
  Serious: Yes (Other)
  Sender: FDA-Public Use
  Company Number: JP-UCBJ-CD202400956UCBPHAPROD

PATIENT
  Age: 4 Year
  Sex: Female

DRUGS (3)
  1. LEVETIRACETAM [Suspect]
     Active Substance: LEVETIRACETAM
     Indication: Epilepsy
     Dosage: UNK
     Route: 048
  2. VALPROATE SODIUM [Concomitant]
     Active Substance: VALPROATE SODIUM
     Indication: Epilepsy
     Dosage: UNK
     Route: 048
  3. TEGRETOL [Concomitant]
     Active Substance: CARBAMAZEPINE
     Indication: Epilepsy
     Dosage: UNK
     Route: 048

REACTIONS (12)
  - Status epilepticus [Unknown]
  - Intentional self-injury [Unknown]
  - Gingival erythema [Unknown]
  - Gingivitis [Unknown]
  - Physical deconditioning [Unknown]
  - Pyrexia [Unknown]
  - Somnolence [Unknown]
  - Dental caries [Unknown]
  - Ligneous conjunctivitis [Unknown]
  - Mental disorder [Unknown]
  - Human bite [Unknown]
  - Poor personal hygiene [Unknown]
